FAERS Safety Report 9285302 (Version 2)
Quarter: 2013Q2

REPORT INFORMATION
  Report Type: Spontaneous
  Country: US (occurrence: US)
  Receive Date: 20130513
  Receipt Date: 20130607
  Transmission Date: 20140414
  Serious: No
  Sender: FDA-Public Use
  Company Number: US-ASTRAZENECA-2013SE24546

PATIENT
  Age: 57 Year
  Sex: Female
  Weight: 59.9 kg

DRUGS (4)
  1. ARIMIDEX [Suspect]
     Indication: BREAST CANCER
     Route: 048
     Dates: start: 201107
  2. PRILOSEC [Suspect]
     Indication: GASTROOESOPHAGEAL REFLUX DISEASE
     Route: 048
  3. ZOMETA [Concomitant]
     Indication: OSTEOPOROSIS PROPHYLAXIS
     Dosage: 4 MG, 6 MONTH
     Dates: start: 201107
  4. CALCIUM AND VITAMIN D [Concomitant]

REACTIONS (1)
  - Tendonitis [Not Recovered/Not Resolved]
